FAERS Safety Report 18058881 (Version 1)
Quarter: 2020Q3

REPORT INFORMATION
  Report Type: Spontaneous
  Country: US (occurrence: US)
  Receive Date: 20200722
  Receipt Date: 20200722
  Transmission Date: 20201103
  Serious: Yes (Hospitalization)
  Sender: FDA-Public Use
  Company Number: None

PATIENT
  Age: 49 Year
  Sex: Female

DRUGS (21)
  1. MEDROXYPR AC [Concomitant]
  2. VITAMIN D [Concomitant]
     Active Substance: VITAMIN D NOS
  3. DEXAMETHASON [Concomitant]
     Active Substance: DEXAMETHASONE
  4. JANUVIA [Concomitant]
     Active Substance: SITAGLIPTIN PHOSPHATE
  5. NYSTATIN. [Concomitant]
     Active Substance: NYSTATIN
  6. FLUCONAZOLE. [Concomitant]
     Active Substance: FLUCONAZOLE
  7. GABAPENTIN. [Concomitant]
     Active Substance: GABAPENTIN
  8. LISINOPRIL. [Concomitant]
     Active Substance: LISINOPRIL
  9. ATOVAQUONE. [Concomitant]
     Active Substance: ATOVAQUONE
  10. CLINDAMYCIN. [Concomitant]
     Active Substance: CLINDAMYCIN
  11. METOPROL SUC [Concomitant]
  12. ONDANSETRON [Concomitant]
     Active Substance: ONDANSETRON
  13. SPRYCEL [Suspect]
     Active Substance: DASATINIB
     Indication: ACUTE LYMPHOCYTIC LEUKAEMIA
     Route: 048
     Dates: start: 20200123
  14. ACYCLOVIR. [Concomitant]
     Active Substance: ACYCLOVIR
  15. DOXYCYCL HYC [Concomitant]
  16. METOPROL TAR [Concomitant]
  17. LIDO/PRILOCN CRE [Concomitant]
  18. MIRTAZAPINE. [Concomitant]
     Active Substance: MIRTAZAPINE
  19. ALLOPURINOL. [Concomitant]
     Active Substance: ALLOPURINOL
  20. LEVOFLOXACIN. [Concomitant]
     Active Substance: LEVOFLOXACIN
  21. NITROGLYCERN [Concomitant]

REACTIONS (1)
  - Palpitations [None]

NARRATIVE: CASE EVENT DATE: 20200305
